FAERS Safety Report 9253317 (Version 1)
Quarter: 2013Q2

REPORT INFORMATION
  Report Type: Spontaneous
  Country: IL (occurrence: IL)
  Receive Date: 20130424
  Receipt Date: 20130424
  Transmission Date: 20140414
  Serious: Yes (Hospitalization)
  Sender: FDA-Public Use
  Company Number: IL-ELI_LILLY_AND_COMPANY-IL201303002011

PATIENT
  Age: 71 Year
  Sex: Male

DRUGS (4)
  1. CIALIS [Suspect]
     Dosage: 20 MG, UNKNOWN
     Route: 048
  2. VALSARTAN [Concomitant]
  3. VALSARTAN/HCT [Concomitant]
     Indication: HYPERTENSION
     Dosage: UNK, BID
  4. GLUCOMIN [Concomitant]
     Indication: DIABETES MELLITUS
     Dosage: 1 DF, TID

REACTIONS (3)
  - Prostatic disorder [Unknown]
  - Erectile dysfunction [Unknown]
  - Drug ineffective [Unknown]
